FAERS Safety Report 23037682 (Version 1)
Quarter: 2023Q4

REPORT INFORMATION
  Report Type: Spontaneous
  Country: US (occurrence: None)
  Receive Date: 20231005
  Receipt Date: 20231005
  Transmission Date: 20240110
  Serious: Yes (Life-Threatening)
  Sender: FDA-Public Use
  Company Number: None

PATIENT
  Age: 47 Year
  Sex: Female
  Weight: 62.1 kg

DRUGS (5)
  1. KEYTRUDA [Suspect]
     Active Substance: PEMBROLIZUMAB
     Route: 042
     Dates: start: 20230322, end: 20230707
  2. ELIQUIS [Concomitant]
     Active Substance: APIXABAN
  3. VITAMINS [Concomitant]
     Active Substance: VITAMINS
  4. MELATONIN [Concomitant]
     Active Substance: MELATONIN
  5. MAGNESIUM [Concomitant]
     Active Substance: MAGNESIUM

REACTIONS (2)
  - Hypophysitis [None]
  - Adrenal disorder [None]

NARRATIVE: CASE EVENT DATE: 20230919
